FAERS Safety Report 16982864 (Version 1)
Quarter: 2019Q4

REPORT INFORMATION
  Report Type: Spontaneous
  Country: US (occurrence: US)
  Receive Date: 20191101
  Receipt Date: 20191101
  Transmission Date: 20200122
  Serious: No
  Sender: FDA-Public Use
  Company Number: US-SUNOVION-2019SUN004612

PATIENT
  Sex: Male

DRUGS (1)
  1. LATUDA [Suspect]
     Active Substance: LURASIDONE HYDROCHLORIDE
     Indication: BIPOLAR DISORDER
     Dosage: 40 MG, QD
     Route: 048
     Dates: start: 2019, end: 201910

REACTIONS (6)
  - Feeling abnormal [Unknown]
  - Decreased activity [Unknown]
  - Apathy [Unknown]
  - Product dose omission [Unknown]
  - Memory impairment [Unknown]
  - Somnolence [Unknown]
